FAERS Safety Report 5346945-X (Version None)
Quarter: 2007Q2

REPORT INFORMATION
  Report Type: 
  Country: None (occurrence: None)
  Receive Date: 20070508
  Receipt Date: 20060530
  Transmission Date: 20071010
  Serious: Yes (Hospitalization)
  Sender: FDA-Public Use
  Company Number: 233352K06USA

PATIENT
  Age: 32 Year
  Sex: Female
  Weight: 90.7194 kg

DRUGS (7)
  1. REBIF [Suspect]
     Indication: MULTIPLE SCLEROSIS
     Dosage: 45 NOT REPORTED, 3 IN 1 WEEKS, SUBCUTANEOUS
     Route: 058
     Dates: start: 20021011
  2. IBUPROFEN [Concomitant]
  3. TIZANIDINE HCL [Concomitant]
  4. BACLOFEN [Concomitant]
  5. VERAPAMIL (VERAPAMIL /00014301/) [Concomitant]
  6. MIDRIN (MIDRID) [Concomitant]
  7. DEPO-PROVERA SUSPENSION/INJ [Concomitant]

REACTIONS (3)
  - CALCINOSIS [None]
  - INJECTION SITE ERYTHEMA [None]
  - SOFT TISSUE NECROSIS [None]
